FAERS Safety Report 7828126-0 (Version None)
Quarter: 2011Q4

REPORT INFORMATION
  Report Type: 
  Country: None (occurrence: None)
  Receive Date: 20111020
  Receipt Date: 20111012
  Transmission Date: 20120403
  Serious: Yes (Hospitalization)
  Sender: FDA-Public Use
  Company Number: US-GILEAD-2011-0043953

PATIENT

DRUGS (17)
  1. LETAIRIS [Suspect]
     Route: 048
     Dates: start: 20110813
  2. ACETAMINOPHEN AND OXYCODONE HCL [Concomitant]
     Dosage: 325-5 MG
  3. PERCOCET [Concomitant]
  4. ASPIRIN [Concomitant]
     Dosage: 81 MG, UNK
  5. REVATIO [Concomitant]
     Dosage: 20 MG, UNK
  6. OXYGEN [Concomitant]
     Dosage: 24 UNK, UNK
  7. EPOPROSTENOL SODIUM [Suspect]
  8. PLAVIX [Concomitant]
     Dosage: 75 MG, UNK
  9. SENNA                              /00142201/ [Concomitant]
     Dosage: 17 MG, UNK
  10. ASCORBIC ACID [Concomitant]
     Dosage: 500 MG, UNK
  11. NIFEDIPINE [Concomitant]
     Dosage: 90 MG, UNK
  12. REMERON [Concomitant]
     Dosage: 30 MG, UNK
  13. PROTONIX [Concomitant]
     Dosage: 40 MG, UNK
  14. COLACE [Concomitant]
     Dosage: 100 MG, UNK
  15. ZOFRAN [Concomitant]
     Dosage: 4 MG, UNK
  16. MULTIVITAMINS, COMBINATIONS [Concomitant]
  17. LISINOPRIL [Concomitant]
     Dosage: 40 MG, QD

REACTIONS (4)
  - CHEST PAIN [None]
  - DYSPNOEA [None]
  - NAUSEA [None]
  - CLOSTRIDIUM DIFFICILE COLITIS [None]
